FAERS Safety Report 22636883 (Version 1)
Quarter: 2023Q2

REPORT INFORMATION
  Report Type: Spontaneous
  Country: GB (occurrence: GB)
  Receive Date: 20230626
  Receipt Date: 20230626
  Transmission Date: 20230721
  Serious: Yes (Other)
  Sender: FDA-Public Use
  Company Number: GB-MHRA-MED-202210310922074340-BZLGM

PATIENT
  Age: 8 Month
  Sex: Female
  Weight: 11 kg

DRUGS (1)
  1. SERTRALINE [Suspect]
     Active Substance: SERTRALINE HYDROCHLORIDE
     Indication: Perinatal depression
     Dosage: 25 MILLIGRAM, 1 DOSE, DAILY
     Route: 063
     Dates: start: 202209, end: 202210

REACTIONS (4)
  - Exposure via breast milk [Unknown]
  - Rash [Recovering/Resolving]
  - Acne [Recovering/Resolving]
  - Pruritus [Unknown]

NARRATIVE: CASE EVENT DATE: 20220901
